FAERS Safety Report 14735487 (Version 1)
Quarter: 2018Q2

REPORT INFORMATION
  Report Type: Spontaneous
  Country: US (occurrence: US)
  Receive Date: 20180403
  Receipt Date: 20180403
  Transmission Date: 20180711
  Serious: Yes (Disabling, Other)
  Sender: FDA-Public Use
  Company Number: None

PATIENT
  Age: 35 Year
  Sex: Female
  Weight: 120.15 kg

DRUGS (2)
  1. GLATIRAMER ACETATE. [Suspect]
     Active Substance: GLATIRAMER ACETATE
     Indication: RELAPSING-REMITTING MULTIPLE SCLEROSIS
     Dosage: ?          OTHER FREQUENCY:05/01/2019;?
     Route: 058
  2. MYLAN GLATIRAMER ACETATE [Concomitant]

REACTIONS (8)
  - Depression [None]
  - Fatigue [None]
  - Pain in extremity [None]
  - Injection site reaction [None]
  - Muscle spasticity [None]
  - Pain [None]
  - Paraesthesia [None]
  - Asthenia [None]
